FAERS Safety Report 20989250 (Version 1)
Quarter: 2022Q2

REPORT INFORMATION
  Report Type: Report from Study
  Country: US (occurrence: US)
  Receive Date: 20220621
  Receipt Date: 20220621
  Transmission Date: 20220721
  Serious: Yes (Hospitalization)
  Sender: FDA-Public Use
  Company Number: US-ABBVIE-22P-163-4433957-00

PATIENT
  Age: 5 Year
  Sex: Female
  Weight: 13.6 kg

DRUGS (10)
  1. VENETOCLAX [Suspect]
     Active Substance: VENETOCLAX
     Indication: Recurrent cancer
     Dosage: 1X DAILY, D1-10 OF EACH 28 DAY CYCLE
     Route: 050
     Dates: start: 20220131, end: 20220131
  2. VENETOCLAX [Suspect]
     Active Substance: VENETOCLAX
     Indication: Refractory cancer
     Dosage: 1X DAILY, D1-10 OF EACH 28 DAY CYCLE
     Route: 050
     Dates: start: 20220201
  3. CYCLOPHOSPHAMIDE [Suspect]
     Active Substance: CYCLOPHOSPHAMIDE
     Indication: Recurrent cancer
     Dosage: D1-D3 OF 28 DAY CYCLE
     Route: 042
     Dates: start: 20220202, end: 20220311
  4. CYCLOPHOSPHAMIDE [Suspect]
     Active Substance: CYCLOPHOSPHAMIDE
     Indication: Refractory cancer
     Dosage: D1-D3 OF 28 DAY CYCLE
     Route: 042
     Dates: start: 20220425
  5. TOPOTECAN HYDROCHLORIDE [Suspect]
     Active Substance: TOPOTECAN HYDROCHLORIDE
     Indication: Recurrent cancer
     Dosage: D1-D3 OF 28 DAY CYCLE
     Route: 042
     Dates: start: 20220202, end: 20220311
  6. TOPOTECAN HYDROCHLORIDE [Suspect]
     Active Substance: TOPOTECAN HYDROCHLORIDE
     Indication: Refractory cancer
     Dosage: D1-D3 OF 28 DAY CYCLE
     Route: 042
     Dates: start: 20220425
  7. LEVOTHYROXINE [Concomitant]
     Active Substance: LEVOTHYROXINE
     Indication: Hypothyroidism
     Route: 048
     Dates: start: 20181105
  8. HYDROCORTISONE [Concomitant]
     Active Substance: HYDROCORTISONE
     Indication: Optic nerve disorder
     Route: 042
     Dates: start: 20181115
  9. SALINE BOLUS [Concomitant]
     Indication: Fluid replacement
     Route: 042
     Dates: start: 20220202
  10. ZOFRAN [Concomitant]
     Active Substance: ONDANSETRON HYDROCHLORIDE
     Indication: Prophylaxis of nausea and vomiting
     Route: 042
     Dates: start: 20220204

REACTIONS (3)
  - Platelet count decreased [Not Recovered/Not Resolved]
  - Anaemia [Not Recovered/Not Resolved]
  - Epistaxis [Recovered/Resolved]

NARRATIVE: CASE EVENT DATE: 20220612
